FAERS Safety Report 7569667-3 (Version None)
Quarter: 2011Q2

REPORT INFORMATION
  Report Type: 
  Country: None (occurrence: None)
  Receive Date: 20110617
  Receipt Date: 20110608
  Transmission Date: 20111010
  Serious: Yes (Hospitalization)
  Sender: FDA-Public Use
  Company Number: 2011SP027345

PATIENT
  Age: 19 Year
  Sex: Male

DRUGS (1)
  1. BETAMETHASONE SODIUM PHOSPHATE [Suspect]
     Indication: SCLERITIS
     Dosage: 4 MG;QD
     Dates: start: 20071114

REACTIONS (6)
  - HEADACHE [None]
  - VISUAL ACUITY REDUCED [None]
  - NECROTISING RETINITIS [None]
  - EYE PAIN [None]
  - IMMUNE SYSTEM DISORDER [None]
  - HERPES SIMPLEX [None]
